FAERS Safety Report 7520544-3 (Version None)
Quarter: 2011Q2

REPORT INFORMATION
  Report Type: 
  Country: None (occurrence: None)
  Receive Date: 20110602
  Receipt Date: 20110520
  Transmission Date: 20111010
  Serious: Yes (Hospitalization)
  Sender: FDA-Public Use
  Company Number: PHHY2011US46125

PATIENT
  Sex: Female

DRUGS (1)
  1. EXJADE [Suspect]
     Dosage: 1500 MG, DAILY
     Route: 048
     Dates: start: 20101111, end: 20110512

REACTIONS (4)
  - VOMITING [None]
  - PNEUMONIA [None]
  - SUBDURAL HAEMATOMA [None]
  - APPENDICITIS [None]
